FAERS Safety Report 6810452-5 (Version None)
Quarter: 2010Q2

REPORT INFORMATION
  Report Type: 
  Country: None (occurrence: None)
  Receive Date: 20100630
  Receipt Date: 20100628
  Transmission Date: 20101027
  Serious: Yes (Hospitalization)
  Sender: FDA-Public Use
  Company Number: FR-WYE-G06325610

PATIENT
  Age: 14 Year
  Sex: Female

DRUGS (3)
  1. ADVIL LIQUI-GELS [Suspect]
     Dosage: 2 DOSE FORM IN ONE INTAKE AT 06:45 PM
     Route: 048
     Dates: start: 20091206, end: 20091206
  2. MOTILIUM [Suspect]
     Dosage: 3 DOSE FORM IN ONE INTAKE AT 06:45 PM
     Route: 048
     Dates: start: 20091206, end: 20091206
  3. RHINUREFLEX [Suspect]
     Dosage: 4 DOSE FORM IN ONE INTAKE AT 06:45 PM.
     Route: 048
     Dates: start: 20091206, end: 20091206

REACTIONS (3)
  - ABDOMINAL PAIN [None]
  - ASTHENIA [None]
  - SOMNOLENCE [None]
